FAERS Safety Report 12287581 (Version 1)
Quarter: 2016Q2

REPORT INFORMATION
  Report Type: Spontaneous
  Country: US (occurrence: US)
  Receive Date: 20160420
  Receipt Date: 20160420
  Transmission Date: 20160815
  Serious: Yes (Other)
  Sender: FDA-Public Use
  Company Number: US-SHIRE-US201604356

PATIENT
  Age: 20 Year
  Sex: Male
  Weight: 50.79 kg

DRUGS (2)
  1. GATTEX [Suspect]
     Active Substance: TEDUGLUTIDE\WATER
     Dosage: 2.4 MG, 1X/DAY:QD
     Route: 058
     Dates: start: 20160327
  2. GATTEX [Suspect]
     Active Substance: TEDUGLUTIDE\WATER
     Indication: SHORT-BOWEL SYNDROME
     Dosage: 2.4 UNK, UNK
     Route: 058
     Dates: start: 20151006, end: 201603

REACTIONS (2)
  - Clostridium difficile infection [Unknown]
  - Streptococcal infection [Unknown]

NARRATIVE: CASE EVENT DATE: 201602
